FAERS Safety Report 9331114 (Version 1)
Quarter: 2013Q2

REPORT INFORMATION
  Report Type: Spontaneous
  Country: IT (occurrence: None)
  Receive Date: 20130531
  Receipt Date: 20130531
  Transmission Date: 20140414
  Serious: Yes (Hospitalization, Other)
  Sender: FDA-Public Use
  Company Number: FK201301683

PATIENT
  Age: 39 Year
  Sex: Female

DRUGS (11)
  1. VALPROATE [Suspect]
     Indication: BIPOLAR DISORDER
  2. CLOZAPINE (CLOZAPINE) [Concomitant]
  3. LITHIUM (LITHIUM) UNKNOWN [Concomitant]
  4. PIPAMPERONE (PIPAMPERONE) [Concomitant]
  5. HALOPERIDOL (HALOPERIDOL) (HALOPERIDOL) [Concomitant]
  6. DIAZEPAM (DIAZEPAM) [Concomitant]
  7. PARACETAMOL (PARACETAMOL) [Concomitant]
  8. BROMOCRIPTINE (BROMOCRIPTINE) [Concomitant]
  9. APOMORPHINE (APOMORPHINE) [Concomitant]
  10. LEVODORA/CARBIDOPA (SINEMET) [Concomitant]
  11. ROPINIROLE (ROPINIROLE) [Concomitant]

REACTIONS (2)
  - Neuroleptic malignant syndrome [None]
  - Catatonia [None]
